FAERS Safety Report 24819143 (Version 1)
Quarter: 2025Q1

REPORT INFORMATION
  Report Type: Spontaneous
  Country: US (occurrence: None)
  Receive Date: 20250107
  Receipt Date: 20250107
  Transmission Date: 20250409
  Serious: No
  Sender: FDA-CTU
  Company Number: None

PATIENT
  Age: 41 Year
  Sex: Male
  Weight: 56.25 kg

DRUGS (6)
  1. MOXIFLOXACIN [Suspect]
     Active Substance: MOXIFLOXACIN
     Indication: Ureaplasma infection
  2. TRUVADA [Concomitant]
     Active Substance: EMTRICITABINE\TENOFOVIR DISOPROXIL FUMARATE
  3. MELOXICAM [Concomitant]
     Active Substance: MELOXICAM
  4. BUPROPION [Concomitant]
     Active Substance: BUPROPION
  5. LAMOTRIGINE [Concomitant]
     Active Substance: LAMOTRIGINE
  6. TAMSULOSIN [Concomitant]
     Active Substance: TAMSULOSIN

REACTIONS (9)
  - Tendon pain [None]
  - Joint swelling [None]
  - Oedema [None]
  - Erythema [None]
  - Feeling hot [None]
  - Arthropathy [None]
  - Gait disturbance [None]
  - Skin discolouration [None]
  - Mass [None]

NARRATIVE: CASE EVENT DATE: 20241215
